FAERS Safety Report 6929656-6 (Version None)
Quarter: 2010Q3

REPORT INFORMATION
  Report Type: 
  Country: None (occurrence: None)
  Receive Date: 20100813
  Receipt Date: 20100805
  Transmission Date: 20110219
  Serious: Yes (Hospitalization)
  Sender: FDA-Public Use
  Company Number: 2010MA001462

PATIENT
  Age: 54 Year
  Sex: Female

DRUGS (6)
  1. DICLOFENAC SODIUM [Suspect]
     Indication: PAIN IN EXTREMITY
  2. TENOFOVIR DISOPROXIL FUMARATE [Suspect]
     Dosage: 300 MG
  3. LOPINAVIR [Concomitant]
  4. RITONAVIR [Concomitant]
  5. LAMIVUDINE [Concomitant]
  6. METFORMIN [Concomitant]

REACTIONS (9)
  - CONFUSIONAL STATE [None]
  - DISORIENTATION [None]
  - DRUG INTERACTION [None]
  - HAEMORRHAGE [None]
  - HYPERKALAEMIA [None]
  - METABOLIC ACIDOSIS [None]
  - RENAL FAILURE ACUTE [None]
  - RENAL TUBULAR DISORDER [None]
  - SOMNOLENCE [None]
